FAERS Safety Report 11774441 (Version 4)
Quarter: 2016Q1

REPORT INFORMATION
  Report Type: Spontaneous
  Country: US (occurrence: US)
  Receive Date: 20151117
  Receipt Date: 20160218
  Transmission Date: 20160525
  Serious: No
  Sender: FDA-Public Use
  Company Number: US-PFIZER INC-2015381945

PATIENT
  Age: 58 Year
  Sex: Female
  Weight: 130 kg

DRUGS (2)
  1. LYRICA [Suspect]
     Active Substance: PREGABALIN
     Indication: NEUROPATHY PERIPHERAL
     Dosage: TAKES TWO LYRICA, A 100MG TABLET AND 50MG TABLET, TAKES 3 LYRICA A DAY
  2. LYRICA [Suspect]
     Active Substance: PREGABALIN
     Dosage: 100 MG, 3X/DAY

REACTIONS (3)
  - Dysstasia [Unknown]
  - Pain in extremity [Unknown]
  - Feeling abnormal [Unknown]
